FAERS Safety Report 14789080 (Version 2)
Quarter: 2018Q3

REPORT INFORMATION
  Report Type: Spontaneous
  Country: DE (occurrence: DE)
  Receive Date: 20180423
  Receipt Date: 20180702
  Transmission Date: 20181010
  Serious: Yes (Death, Hospitalization)
  Sender: FDA-Public Use
  Company Number: PHHY2018DE062868

PATIENT
  Age: 58 Year
  Sex: Female
  Weight: 81 kg

DRUGS (3)
  1. OXAZEPAM. [Concomitant]
     Active Substance: OXAZEPAM
     Indication: PRODUCT USE IN UNAPPROVED INDICATION
     Route: 065
  2. METFORMIN [Suspect]
     Active Substance: METFORMIN HYDROCHLORIDE
     Indication: TYPE 2 DIABETES MELLITUS
     Dosage: 500 MG, QD
     Route: 065
  3. MIDAZOLAM [Concomitant]
     Active Substance: MIDAZOLAM HYDROCHLORIDE
     Indication: PRODUCT USE IN UNAPPROVED INDICATION
     Route: 065

REACTIONS (10)
  - Toxicity to various agents [Unknown]
  - Acute kidney injury [Fatal]
  - Vomiting [Fatal]
  - Nausea [Fatal]
  - Lactic acidosis [Fatal]
  - Pyrexia [Fatal]
  - Hepatic failure [Fatal]
  - Somnolence [Fatal]
  - Dyspnoea [Fatal]
  - Cardiogenic shock [Fatal]
